FAERS Safety Report 7397432 (Version 3)
Quarter: 2013Q4

REPORT INFORMATION
  Report Type: Spontaneous
  Country: US (occurrence: None)
  Receive Date: 20100517
  Receipt Date: 20131011
  Transmission Date: 20140711
  Serious: Yes (Death, Hospitalization)
  Sender: FDA-Public Use
  Company Number: 2010S1002712

PATIENT
  Age: 84 Year
  Sex: Female
  Weight: 56.7 kg

DRUGS (10)
  1. FLEET PHOSPHO-SODA [Suspect]
     Indication: COLONOSCOPY
     Dosage: 2 IN 6 HOURS
     Route: 048
     Dates: start: 20070626, end: 20070626
  2. VASOTEC (ENALAPRIL MALEATE) (10 MILLIGRAM) [Concomitant]
  3. CELEXA (CITALOPRAM HYDROBROMIDE) (20 MILLIGRAM) [Concomitant]
  4. SYNTHROID (LEVOTHYROXINE SODIUM) (0.025 MILLIGRAM) [Concomitant]
  5. CALTRATE (COLECALCIFEROL, CALCIUM CARBONATE) (600 MILLIGRAM) [Concomitant]
  6. FOLIC ACID AND IRON (FOLIC ACID, IRON) [Concomitant]
  7. PRILOSEC (OMEPRAZOLE) (20 MILLIGRAM) [Concomitant]
  8. ZOCOR (SIMVASTATIN) [Concomitant]
  9. ACTONEL (RISEDRONATE SODIUM) (35 MILLIGRAM) [Concomitant]
  10. E-VISTA (HYDROXYZINE HYDROCHLORIDE) (60 MILLIGRAM) [Concomitant]

REACTIONS (2)
  - Renal impairment [None]
  - Renal failure acute [None]
